FAERS Safety Report 24144944 (Version 2)
Quarter: 2024Q3

REPORT INFORMATION
  Report Type: Spontaneous
  Country: NO (occurrence: NO)
  Receive Date: 20240729
  Receipt Date: 20240731
  Transmission Date: 20241016
  Serious: Yes (Death, Other)
  Sender: RANBAXY
  Company Number: NO-SUN PHARMACEUTICAL INDUSTRIES LTD-2014R1-90322

PATIENT
  Sex: Male

DRUGS (5)
  1. ZOPICLONE [Interacting]
     Active Substance: ZOPICLONE
     Indication: Product used for unknown indication
     Dosage: UNK
     Route: 048
  2. CITALOPRAM [Interacting]
     Active Substance: CITALOPRAM\CITALOPRAM HYDROBROMIDE
     Indication: Product used for unknown indication
     Dosage: UNK
     Route: 048
  3. LAMOTRIGINE [Interacting]
     Active Substance: LAMOTRIGINE
     Indication: Product used for unknown indication
     Dosage: UNK
     Route: 048
  4. HERBALS\MITRAGYNINE [Interacting]
     Active Substance: HERBALS\MITRAGYNINE
     Indication: Product used for unknown indication
     Dosage: UNK
     Route: 048
  5. 7-HYDROXYMITRAGYNINE [Interacting]
     Active Substance: 7-HYDROXYMITRAGYNINE
     Indication: Product used for unknown indication
     Dosage: UNK
     Route: 048

REACTIONS (5)
  - Accidental poisoning [Fatal]
  - Drug interaction [Fatal]
  - Toxicity to various agents [Fatal]
  - Respiratory depression [Fatal]
  - Pulmonary congestion [Fatal]
